FAERS Safety Report 12709390 (Version 1)
Quarter: 2016Q3

REPORT INFORMATION
  Report Type: Spontaneous
  Country: US (occurrence: US)
  Receive Date: 20160901
  Receipt Date: 20160901
  Transmission Date: 20161109
  Serious: No
  Sender: FDA-Public Use
  Company Number: US-ASTRAZENECA-2006BM02052

PATIENT
  Age: 42 Year
  Sex: Female
  Weight: 89.8 kg

DRUGS (14)
  1. GLYBURIDE. [Concomitant]
     Active Substance: GLYBURIDE
     Indication: TYPE 2 DIABETES MELLITUS
     Dosage: 5 MG, QD
  2. CRESTOR [Suspect]
     Active Substance: ROSUVASTATIN CALCIUM
     Indication: BLOOD CHOLESTEROL ABNORMAL
     Route: 048
     Dates: end: 2016
  3. CRESTOR [Suspect]
     Active Substance: ROSUVASTATIN CALCIUM
     Indication: BLOOD CHOLESTEROL ABNORMAL
     Route: 048
  4. VITAMIN D [Concomitant]
     Active Substance: CHOLECALCIFEROL
  5. BYETTA [Suspect]
     Active Substance: EXENATIDE
     Indication: TYPE 2 DIABETES MELLITUS
     Dosage: 5 ???G, BID
     Route: 058
     Dates: start: 20060119
  6. VICTOZA [Concomitant]
     Active Substance: LIRAGLUTIDE
     Indication: BLOOD PRESSURE ABNORMAL
  7. REGULAR ASPIRIN [Concomitant]
     Active Substance: ASPIRIN
  8. LOSARTAN. [Concomitant]
     Active Substance: LOSARTAN
     Indication: BLOOD PRESSURE ABNORMAL
  9. PRILOSEC [Suspect]
     Active Substance: OMEPRAZOLE MAGNESIUM
     Indication: GASTROOESOPHAGEAL REFLUX DISEASE
     Route: 048
     Dates: start: 2008
  10. XIGDUO XR [Suspect]
     Active Substance: DAPAGLIFLOZIN PROPANEDIOL\METFORMIN HYDROCHLORIDE
     Indication: DIABETES MELLITUS
     Dosage: ONE TABLET 2 TIMES DAILY
     Route: 048
  11. XIGDUO XR [Suspect]
     Active Substance: DAPAGLIFLOZIN PROPANEDIOL\METFORMIN HYDROCHLORIDE
     Indication: DIABETES MELLITUS
     Dosage: 1000/5 TWO TABLETS AT NIGHT
     Route: 048
  12. ZETIA [Concomitant]
     Active Substance: EZETIMIBE
  13. TUJEO [Concomitant]
     Indication: DIABETES MELLITUS
  14. BYSTOLIC [Concomitant]
     Active Substance: NEBIVOLOL HYDROCHLORIDE
     Indication: BLOOD PRESSURE MEASUREMENT

REACTIONS (9)
  - Anaemia [Unknown]
  - Nausea [Not Recovered/Not Resolved]
  - Diabetes mellitus [Unknown]
  - Back disorder [Unknown]
  - Blood cholesterol increased [Unknown]
  - Off label use [Unknown]
  - Drug dose omission [Unknown]
  - Renal tumour excision [Unknown]
  - Muscle spasms [Unknown]

NARRATIVE: CASE EVENT DATE: 1999
